FAERS Safety Report 9947256 (Version 1)
Quarter: 2014Q1

REPORT INFORMATION
  Report Type: Report from Study
  Country: US (occurrence: US)
  Receive Date: 20140303
  Receipt Date: 20140303
  Transmission Date: 20141002
  Serious: No
  Sender: FDA-Public Use
  Company Number: US-ABBVIE-13P-163-1065354-00

PATIENT
  Age: 52 Year
  Sex: Female

DRUGS (6)
  1. HUMIRA [Suspect]
     Indication: PSORIATIC ARTHROPATHY
     Dates: start: 201212, end: 201302
  2. HUMIRA [Suspect]
     Dates: start: 20130306
  3. METHOTREXATE [Concomitant]
     Indication: PRODUCT USED FOR UNKNOWN INDICATION
     Dosage: 6 WEEKLY
  4. FOLIC ACID [Concomitant]
     Indication: PRODUCT USED FOR UNKNOWN INDICATION
  5. HCTZ [Concomitant]
     Indication: HYPERTENSION
     Dosage: 25 MG DAILY
  6. CITALOPRAM [Concomitant]
     Indication: ANXIETY
     Dosage: 20 MG DAILY

REACTIONS (3)
  - Back pain [Recovering/Resolving]
  - Injection site pain [Recovering/Resolving]
  - Urinary tract infection [Recovering/Resolving]
